FAERS Safety Report 6077820-3 (Version None)
Quarter: 2009Q1

REPORT INFORMATION
  Report Type: 
  Country: None (occurrence: None)
  Receive Date: 20090121
  Receipt Date: 20080327
  Transmission Date: 20090719
  Serious: Yes (Hospitalization)
  Sender: FDA-Public Use
  Company Number: HQWYE888708JUL03

PATIENT
  Age: 50 Year
  Sex: Female

DRUGS (2)
  1. PREMPRO [Suspect]
     Indication: HORMONE REPLACEMENT THERAPY
     Dosage: DAILY, DOSE UNK
     Dates: start: 19730101, end: 19990101
  2. PREMARIN [Suspect]

REACTIONS (1)
  - BREAST CANCER FEMALE [None]
